FAERS Safety Report 22669756 (Version 2)
Quarter: 2023Q4

REPORT INFORMATION
  Report Type: Report from Study
  Country: US (occurrence: US)
  Receive Date: 20230704
  Receipt Date: 20231028
  Transmission Date: 20240109
  Serious: Yes (Other)
  Sender: FDA-Public Use
  Company Number: US-ABBVIE-5312325

PATIENT
  Sex: Female

DRUGS (2)
  1. SKYRIZI [Suspect]
     Active Substance: RISANKIZUMAB-RZAA
     Indication: Psoriasis
     Route: 058
  2. COVID-19 vaccine [Concomitant]
     Indication: COVID-19 immunisation

REACTIONS (18)
  - Surgery [Unknown]
  - Spinal osteoarthritis [Unknown]
  - Onychomadesis [Unknown]
  - Fibromyalgia [Unknown]
  - Infection [Unknown]
  - Polyarthritis [Unknown]
  - Osteoporosis [Unknown]
  - Stress [Unknown]
  - Depression [Unknown]
  - Bipolar disorder [Unknown]
  - Optic nerve injury [Unknown]
  - Chemotherapy [Unknown]
  - COVID-19 [Recovering/Resolving]
  - Magnetic resonance imaging head abnormal [Unknown]
  - Rheumatoid arthritis [Recovering/Resolving]
  - Cerebral infarction [Unknown]
  - Ear pain [Unknown]
  - Ear swelling [Unknown]

NARRATIVE: CASE EVENT DATE: 20210101
